FAERS Safety Report 11174638 (Version 1)
Quarter: 2015Q2

REPORT INFORMATION
  Report Type: Spontaneous
  Country: US (occurrence: None)
  Receive Date: 20150608
  Receipt Date: 20150608
  Transmission Date: 20150821
  Serious: Yes (Disabling, Other)
  Sender: FDA-Public Use
  Company Number: None

PATIENT
  Age: 49 Year
  Sex: Male
  Weight: 235 kg

DRUGS (4)
  1. CENTRIUM SILVER MULTIVITAMINS [Concomitant]
  2. OMEPRAZOLE. [Concomitant]
     Active Substance: OMEPRAZOLE
  3. EGRIFTA [Suspect]
     Active Substance: TESAMORELIN
     Indication: LIPODYSTROPHY ACQUIRED
     Dates: start: 20141210, end: 20150225
  4. STIBILD [Concomitant]

REACTIONS (11)
  - Dizziness [None]
  - Influenza like illness [None]
  - Muscle strain [None]
  - Asthenia [None]
  - Joint dislocation [None]
  - Musculoskeletal discomfort [None]
  - Arthropathy [None]
  - Headache [None]
  - Restlessness [None]
  - Loose tooth [None]
  - Muscle injury [None]

NARRATIVE: CASE EVENT DATE: 20141210
